FAERS Safety Report 8204468-4 (Version None)
Quarter: 2012Q1

REPORT INFORMATION
  Report Type: 
  Country: None (occurrence: None)
  Receive Date: 20120313
  Receipt Date: 20120306
  Transmission Date: 20120608
  Serious: Yes (Hospitalization)
  Sender: FDA-Public Use
  Company Number: US-BAYER-2012-022396

PATIENT
  Age: 77 Year
  Sex: Male

DRUGS (5)
  1. BETASERON [Suspect]
     Dosage: 8 MIU, QOD
     Route: 058
  2. BETASERON [Suspect]
     Dosage: 6 MIU, QOD WEEKS 5-6
     Route: 058
  3. COPAXONE [Concomitant]
  4. BETASERON [Suspect]
     Indication: MULTIPLE SCLEROSIS
     Dosage: 2 MIU, QOD WEEKS 1-2
     Route: 058
     Dates: start: 20110601
  5. BETASERON [Suspect]
     Dosage: 4 MIU, QOD WEEKS 3-4
     Route: 058

REACTIONS (1)
  - OEDEMA [None]
